FAERS Safety Report 8221735 (Version 4)
Quarter: 2013Q3

REPORT INFORMATION
  Report Type: Report from Study
  Country: US (occurrence: US)
  Receive Date: 20111102
  Receipt Date: 20130719
  Transmission Date: 20140515
  Serious: Yes (Hospitalization)
  Sender: FDA-Public Use
  Company Number: US-JNJFOC-20111011625

PATIENT
  Age: 14 Year
  Sex: Female
  Weight: 50.4 kg

DRUGS (6)
  1. INFLIXIMAB, RECOMBINANT [Suspect]
     Indication: INFLAMMATORY BOWEL DISEASE
     Route: 042
     Dates: start: 20100830
  2. BUDESONIDE [Concomitant]
     Route: 065
  3. PREDNISONE [Concomitant]
     Route: 065
  4. ANTIBIOTICS [Concomitant]
     Indication: INFLAMMATORY BOWEL DISEASE
     Route: 065
  5. LEVAQUIN [Concomitant]
     Route: 065
  6. ZANTAC [Concomitant]
     Route: 065

REACTIONS (2)
  - Intestinal perforation [Recovered/Resolved]
  - Postoperative ileus [Recovered/Resolved]
